FAERS Safety Report 6451046-3 (Version None)
Quarter: 2009Q4

REPORT INFORMATION
  Report Type: 
  Country: None (occurrence: None)
  Receive Date: 20091123
  Receipt Date: 20091111
  Transmission Date: 20100525
  Serious: Yes (Hospitalization)
  Sender: FDA-Public Use
  Company Number: NL-SANOFI-AVENTIS-A01200905417

PATIENT
  Age: 76 Year
  Sex: Male

DRUGS (13)
  1. CLOPIDOGREL BISULFATE [Suspect]
     Dosage: UNIT DOSE: 75 MG
     Route: 048
     Dates: start: 20090505
  2. CLEXANE /GFR/ [Interacting]
     Indication: PULMONARY EMBOLISM
     Route: 058
     Dates: start: 20090505, end: 20090508
  3. ASCAL [Interacting]
     Route: 065
     Dates: start: 20090505, end: 20090508
  4. ACENOCOUMAROL [Interacting]
     Indication: PULMONARY EMBOLISM
     Route: 048
     Dates: start: 20090507, end: 20090510
  5. ACENOCOUMAROL [Interacting]
     Route: 048
     Dates: start: 20090514, end: 20090908
  6. ACETYLCYSTEINE [Concomitant]
     Indication: CHRONIC OBSTRUCTIVE PULMONARY DISEASE
     Route: 048
     Dates: start: 19990101
  7. FLUTICASONE/SALMETEROL [Concomitant]
     Indication: CHRONIC OBSTRUCTIVE PULMONARY DISEASE
     Route: 048
     Dates: start: 19950101
  8. TIOTROPIUM BROMIDE [Concomitant]
     Indication: CHRONIC OBSTRUCTIVE PULMONARY DISEASE
     Dosage: DOSE TEXT: 18 MCG AND 32 MCG
     Route: 055
     Dates: start: 19950101
  9. PREDNISOLONE [Concomitant]
     Route: 048
     Dates: start: 20090320, end: 20090326
  10. AMOXICILLIN [Concomitant]
     Route: 048
     Dates: start: 20090320, end: 20090326
  11. OMEPRAZOLE [Concomitant]
     Indication: PROPHYLAXIS
     Route: 048
     Dates: start: 20090507
  12. FUROSEMIDE [Concomitant]
     Route: 048
     Dates: start: 20090505
  13. SIMVASTATIN [Concomitant]
     Route: 048
     Dates: start: 20090505

REACTIONS (4)
  - DRUG INTERACTION [None]
  - MELAENA [None]
  - OESOPHAGEAL ULCER [None]
  - OESOPHAGEAL ULCER HAEMORRHAGE [None]
